FAERS Safety Report 21404910 (Version 1)
Quarter: 2022Q4

REPORT INFORMATION
  Report Type: Spontaneous
  Country: US (occurrence: None)
  Receive Date: 20221001
  Receipt Date: 20221001
  Transmission Date: 20230113
  Serious: Yes (Hospitalization)
  Sender: FDA-Public Use
  Company Number: None

PATIENT
  Age: 38 Year
  Sex: Male
  Weight: 80.9 kg

DRUGS (3)
  1. METHOTREXATE [Suspect]
     Active Substance: METHOTREXATE
     Dates: end: 20220922
  2. ONCASPAR [Suspect]
     Active Substance: PEGASPARGASE
     Dates: end: 20220913
  3. VINCRISTINE SULFATE [Suspect]
     Active Substance: VINCRISTINE SULFATE
     Dates: end: 20220922

REACTIONS (14)
  - Rash vesicular [None]
  - Lip swelling [None]
  - Lip blister [None]
  - Skin lesion [None]
  - Erythema [None]
  - Pyrexia [None]
  - Chills [None]
  - Drug eruption [None]
  - Drug reaction with eosinophilia and systemic symptoms [None]
  - Stevens-Johnson syndrome [None]
  - Hepatic enzyme increased [None]
  - Drug reaction with eosinophilia and systemic symptoms [None]
  - Viral rash [None]
  - Dermatitis contact [None]

NARRATIVE: CASE EVENT DATE: 20220923
